FAERS Safety Report 4877544-1 (Version None)
Quarter: 2006Q1

REPORT INFORMATION
  Report Type: 
  Country: None (occurrence: None)
  Receive Date: 20060109
  Receipt Date: 20060103
  Transmission Date: 20060701
  Serious: Yes (Hospitalization)
  Sender: FDA-Public Use
  Company Number: CERZ-11005

PATIENT
  Age: 53 Year
  Sex: Female
  Weight: 65 kg

DRUGS (2)
  1. CEREZYME [Suspect]
     Indication: GAUCHER'S DISEASE
     Dosage: 3800 UNITS Q2WKS IV
     Route: 042
     Dates: start: 20000922
  2. ACTONEL [Concomitant]

REACTIONS (2)
  - CONVULSION [None]
  - MENINGIOMA [None]
